FAERS Safety Report 8092246-9 (Version None)
Quarter: 2012Q1

REPORT INFORMATION
  Report Type: 
  Country: None (occurrence: None)
  Receive Date: 20120129
  Receipt Date: 20111116
  Transmission Date: 20120608
  Serious: No
  Sender: FDA-Public Use
  Company Number: US-ABBOTT-11P-163-0871685-00

PATIENT
  Sex: Female
  Weight: 64.014 kg

DRUGS (9)
  1. HUMIRA [Suspect]
     Dates: start: 20111101
  2. HUMIRA [Suspect]
     Dates: start: 20100101, end: 20110601
  3. UNKNOWN MEDICATION [Concomitant]
     Indication: CROHN'S DISEASE
  4. PROBIOTIC [Concomitant]
     Indication: CROHN'S DISEASE
  5. VITAMIN TAB [Concomitant]
     Indication: PRODUCT USED FOR UNKNOWN INDICATION
  6. HUMIRA [Suspect]
     Indication: CROHN'S DISEASE
     Dates: start: 20090101, end: 20090101
  7. HUMIRA [Suspect]
     Dosage: INITIAL DOSE/ LOADING DOSE #1
     Dates: start: 20101101, end: 20101101
  8. ASACOL [Concomitant]
     Indication: CROHN'S DISEASE
  9. HUMIRA [Suspect]
     Dosage: SECOND LOADING DOSE #2 /2
     Dates: start: 20100101, end: 20100101

REACTIONS (8)
  - GASTROINTESTINAL INFLAMMATION [None]
  - DIARRHOEA [None]
  - CYSTITIS NONINFECTIVE [None]
  - DYSPEPSIA [None]
  - URINE ABNORMALITY [None]
  - CYSTITIS [None]
  - CROHN'S DISEASE [None]
  - BILIRUBIN CONJUGATED INCREASED [None]
